FAERS Safety Report 25303481 (Version 1)
Quarter: 2025Q2

REPORT INFORMATION
  Report Type: Spontaneous
  Country: US (occurrence: US)
  Receive Date: 20250513
  Receipt Date: 20250513
  Transmission Date: 20250716
  Serious: No
  Sender: UCB
  Company Number: US-UCBSA-2024064890

PATIENT
  Sex: Female

DRUGS (2)
  1. CIMZIA [Suspect]
     Active Substance: CERTOLIZUMAB PEGOL
     Indication: Psoriasis
     Dosage: 400 MILLIGRAM, EV 2 WEEKS(QOW)
     Route: 058
     Dates: start: 20240826, end: 20250102
  2. COSENTYX [Concomitant]
     Active Substance: SECUKINUMAB
     Indication: Pain
     Dates: start: 20241202

REACTIONS (3)
  - Back pain [Unknown]
  - Arthralgia [Unknown]
  - Fatigue [Unknown]
